FAERS Safety Report 6822959-5 (Version None)
Quarter: 2010Q3

REPORT INFORMATION
  Report Type: 
  Country: None (occurrence: None)
  Receive Date: 20100708
  Receipt Date: 20100629
  Transmission Date: 20110219
  Serious: Yes (Death)
  Sender: FDA-Public Use
  Company Number: A0862594A

PATIENT
  Age: 64 Year
  Sex: Female
  Weight: 45.9 kg

DRUGS (1)
  1. TYKERB [Suspect]
     Indication: PRODUCT USED FOR UNKNOWN INDICATION
     Route: 065

REACTIONS (4)
  - CARDIO-RESPIRATORY ARREST [None]
  - COGNITIVE DISORDER [None]
  - CONFUSIONAL STATE [None]
  - METASTASES TO CENTRAL NERVOUS SYSTEM [None]
